FAERS Safety Report 9594022 (Version 1)
Quarter: 2013Q4

REPORT INFORMATION
  Report Type: Spontaneous
  Country: JP (occurrence: JP)
  Receive Date: 20131004
  Receipt Date: 20131004
  Transmission Date: 20140711
  Serious: Yes (Hospitalization)
  Sender: FDA-Public Use
  Company Number: JP-ASTRAZENECA-2013SE72144

PATIENT
  Age: 52 Year
  Sex: Male

DRUGS (2)
  1. XYLOCAINE [Suspect]
     Indication: NERVE BLOCK
     Route: 053
  2. DEXAMETHASONE [Concomitant]
     Route: 065

REACTIONS (1)
  - Sepsis [Recovered/Resolved]
